FAERS Safety Report 25202696 (Version 1)
Quarter: 2025Q2

REPORT INFORMATION
  Report Type: Spontaneous
  Country: DE (occurrence: DE)
  Receive Date: 20250416
  Receipt Date: 20250416
  Transmission Date: 20250716
  Serious: Yes (Other)
  Sender: ACCORD
  Company Number: None

PATIENT
  Sex: Male
  Weight: 2.53 kg

DRUGS (14)
  1. QUETIAPINE [Suspect]
     Active Substance: QUETIAPINE
     Indication: Schizophrenia
     Dosage: STRENGTH: 50 MG, FILM TABLETS
     Route: 048
     Dates: start: 202307, end: 202307
  2. INSULIN NOS [Concomitant]
     Active Substance: INSULIN NOS
     Indication: Gestational diabetes
     Route: 058
  3. PERTUSSIS VACCINE [Concomitant]
     Active Substance: PERTUSSIS VACCINE
     Indication: Immunisation
     Route: 030
  4. FOLIC ACID [Concomitant]
     Active Substance: FOLIC ACID
     Indication: Prophylaxis of neural tube defect
     Route: 048
  5. SERTRALINE [Concomitant]
     Active Substance: SERTRALINE HYDROCHLORIDE
     Indication: Schizophrenia
     Dosage: STRENGTH: 50 MG
     Route: 048
     Dates: start: 202305, end: 202307
  6. CARIPRAZINE [Concomitant]
     Active Substance: CARIPRAZINE
     Indication: Schizophrenia
     Dosage: STRENGTH: 4.5 MG, STOPPED AFTER COUNSELING, INSTEAD STARTED WITH QUETIAPINE
     Route: 048
     Dates: start: 202305, end: 20230703
  7. SERTRALINE [Concomitant]
     Active Substance: SERTRALINE HYDROCHLORIDE
     Indication: Schizophrenia
     Dosage: STRENGTH: 50 MG
     Dates: start: 202307, end: 202307
  8. QUETIAPINE [Suspect]
     Active Substance: QUETIAPINE
     Indication: Schizophrenia
     Dosage: STRENGTH: 50 MG, FILM TABLETS
     Route: 048
     Dates: start: 202307, end: 202307
  9. QUETIAPINE [Suspect]
     Active Substance: QUETIAPINE
     Indication: Schizophrenia
     Dosage: STRENGTH: 50 MG, FILM TABLETS
     Route: 048
     Dates: start: 202307, end: 202307
  10. QUETIAPINE [Suspect]
     Active Substance: QUETIAPINE
     Indication: Schizophrenia
     Dosage: STRENGTH: 50 MG, FILM TABLETS
     Route: 048
     Dates: start: 202307, end: 202307
  11. QUETIAPINE [Suspect]
     Active Substance: QUETIAPINE
     Indication: Schizophrenia
     Dosage: STRENGTH: 50 MG, FROM GW 12 RETARD TABLETS
     Route: 048
     Dates: start: 202307, end: 202308
  12. QUETIAPINE [Suspect]
     Active Substance: QUETIAPINE
     Indication: Schizophrenia
     Dosage: STRENGTH: 50 MG, FROM GW 12 RETARD TABLETS
     Route: 048
     Dates: start: 202308, end: 202308
  13. QUETIAPINE [Suspect]
     Active Substance: QUETIAPINE
     Indication: Schizophrenia
     Dosage: STRENGTH: 50 MG, RETARD TABLETS
     Route: 048
     Dates: start: 202308, end: 202312
  14. QUETIAPINE [Suspect]
     Active Substance: QUETIAPINE
     Indication: Schizophrenia
     Dosage: STRENGTH: 50 MG, RETARD TABLETS
     Route: 048
     Dates: start: 202312, end: 202402

REACTIONS (2)
  - Small for dates baby [Recovering/Resolving]
  - Foetal exposure during pregnancy [Unknown]
